FAERS Safety Report 7686276-6 (Version None)
Quarter: 2011Q3

REPORT INFORMATION
  Report Type: 
  Country: None (occurrence: None)
  Receive Date: 20110816
  Receipt Date: 20110106
  Transmission Date: 20111222
  Serious: No
  Sender: FDA-Public Use
  Company Number: US-GLAXOSMITHKLINE-A0903642A

PATIENT
  Age: 51 Year
  Sex: Female

DRUGS (1)
  1. TAGAMET HB 200 [Suspect]
     Indication: DYSPEPSIA
     Dates: start: 20110105

REACTIONS (3)
  - PRURITUS [None]
  - RASH [None]
  - DRUG INTERACTION [None]
